FAERS Safety Report 17956988 (Version 1)
Quarter: 2020Q2

REPORT INFORMATION
  Report Type: Spontaneous
  Country: US (occurrence: US)
  Receive Date: 20200629
  Receipt Date: 20200629
  Transmission Date: 20200714
  Serious: Yes (Hospitalization)
  Sender: FDA-Public Use
  Company Number: US-X-GEN PHARMACEUTICALS, INC-2086761

PATIENT
  Age: 20 Year
  Sex: Male
  Weight: 68.4 kg

DRUGS (1)
  1. AMPHOTERICIN B. [Suspect]
     Active Substance: AMPHOTERICIN B
     Indication: ACUTE LYMPHOCYTIC LEUKAEMIA
     Dates: start: 20200529, end: 20200531

REACTIONS (1)
  - Pulmonary haemorrhage [Recovering/Resolving]

NARRATIVE: CASE EVENT DATE: 20200529
